FAERS Safety Report 10477701 (Version 1)
Quarter: 2014Q3

REPORT INFORMATION
  Report Type: Spontaneous
  Country: CN (occurrence: None)
  Receive Date: 20140924
  Receipt Date: 20140924
  Transmission Date: 20150326
  Serious: Yes (Hospitalization, Other)
  Sender: FDA-Public Use
  Company Number: 2014/068

PATIENT
  Age: 59 Year
  Sex: Female

DRUGS (5)
  1. OLANZAPINE (NO PREF. NAME) [Suspect]
     Active Substance: OLANZAPINE
     Indication: GENERALISED ANXIETY DISORDER
     Dosage: 5 MG, OD + UNK
  2. OLANZAPINE (NO PREF. NAME) [Suspect]
     Active Substance: OLANZAPINE
     Indication: TENSION HEADACHE
     Dosage: 5 MG, OD + UNK
  3. CLONAZEPAM. [Concomitant]
     Active Substance: CLONAZEPAM
  4. LORAZEPAM. [Concomitant]
     Active Substance: LORAZEPAM
  5. CITALOPRAM [Concomitant]
     Active Substance: CITALOPRAM HYDROBROMIDE

REACTIONS (4)
  - Headache [None]
  - Restless legs syndrome [None]
  - Initial insomnia [None]
  - Product substitution issue [None]
